FAERS Safety Report 19016991 (Version 4)
Quarter: 2021Q3

REPORT INFORMATION
  Report Type: Other
  Country: EG (occurrence: EG)
  Receive Date: 20210316
  Receipt Date: 20210923
  Transmission Date: 20211014
  Serious: No
  Sender: FDA-Public Use
  Company Number: EG-ROCHE-2790389

PATIENT
  Age: 26 Year
  Sex: Female
  Weight: 85 kg

DRUGS (26)
  1. GAST?REG [Concomitant]
     Indication: ABDOMINAL DISCOMFORT
     Route: 048
     Dates: start: 20190514
  2. ACETYLCYSTEINE. [Concomitant]
     Active Substance: ACETYLCYSTEINE
     Route: 048
     Dates: start: 20201113, end: 20201226
  3. METHYLPREDNISOLONE. [Concomitant]
     Active Substance: METHYLPREDNISOLONE
     Indication: PREMEDICATION
     Dosage: ONCE BEFORE INFUSION
     Route: 042
     Dates: start: 20200216, end: 20200216
  4. VITACID C [Concomitant]
     Route: 048
     Dates: start: 20201113, end: 20201226
  5. OCRELIZUMAB. [Suspect]
     Active Substance: OCRELIZUMAB
     Indication: RELAPSING-REMITTING MULTIPLE SCLEROSIS
     Dosage: 300 MG/250 ML
     Route: 042
     Dates: start: 20200216, end: 20200216
  6. METHYLPREDNISOLONE. [Concomitant]
     Active Substance: METHYLPREDNISOLONE
     Dosage: ONCE BEFORE INFUSION
     Route: 042
     Dates: start: 20200301, end: 20200301
  7. AVIL [Concomitant]
     Active Substance: PHENIRAMINE
     Dosage: ONCE BEFORE INFUSION
     Route: 042
     Dates: start: 20210308, end: 20210308
  8. SOLUPRED (EGYPT) [Concomitant]
     Active Substance: PREDNISOLONE
     Indication: MULTIPLE SCLEROSIS RELAPSE
     Route: 048
     Dates: start: 20201108, end: 20201214
  9. AVIL [Concomitant]
     Active Substance: PHENIRAMINE
     Indication: PREMEDICATION
     Dosage: ONCE BEFORE INFUSION
     Route: 042
     Dates: start: 20200216, end: 20200216
  10. OCRELIZUMAB. [Suspect]
     Active Substance: OCRELIZUMAB
     Route: 042
     Dates: start: 20200813, end: 20200813
  11. OCRELIZUMAB. [Suspect]
     Active Substance: OCRELIZUMAB
     Route: 042
     Dates: start: 20210308, end: 20210308
  12. SOLU?MEDROL [Concomitant]
     Active Substance: METHYLPREDNISOLONE SODIUM SUCCINATE
     Dosage: FREQUENCY: OTHER
     Route: 042
     Dates: start: 20190514, end: 20200121
  13. AVIL [Concomitant]
     Active Substance: PHENIRAMINE
     Dosage: ONCE BEFORE INFUSION
     Route: 042
     Dates: start: 20200301, end: 20200301
  14. PANADOL [Concomitant]
     Active Substance: ACETAMINOPHEN
     Route: 048
     Dates: start: 20201113, end: 20201226
  15. DROPIFLOX [Concomitant]
     Indication: OTITIS MEDIA
     Dates: start: 20200613, end: 20200619
  16. CONTROLOC [Concomitant]
     Active Substance: PANTOPRAZOLE SODIUM
     Indication: ABDOMINAL DISCOMFORT
     Route: 048
     Dates: start: 20190514
  17. NEUROTON [CYANOCOBALAMIN;FOLIC ACID;PYRIDOXINE HYDROCHLORIDE;RIBOFLAVI [Concomitant]
     Indication: SYMPTOMATIC TREATMENT
     Route: 048
  18. METHYLPREDNISOLONE. [Concomitant]
     Active Substance: METHYLPREDNISOLONE
     Dosage: ONCE BEFORE INFUSION
     Route: 042
     Dates: start: 20200813, end: 20200813
  19. METHYLPREDNISOLONE. [Concomitant]
     Active Substance: METHYLPREDNISOLONE
     Dosage: ONCE BEFORE INFUSION
     Route: 042
     Dates: start: 20210308, end: 20210308
  20. AVIL [Concomitant]
     Active Substance: PHENIRAMINE
     Dosage: ONCE BEFORE INFUSION
     Route: 042
     Dates: start: 20200813, end: 20200813
  21. MILGA [Concomitant]
     Active Substance: BENFOTIAMINE\CYANOCOBALAMIN\PYRIDOXINE HYDROCHLORIDE
     Route: 048
  22. SOLU?MEDROL [Concomitant]
     Active Substance: METHYLPREDNISOLONE SODIUM SUCCINATE
     Indication: MULTIPLE SCLEROSIS RELAPSE
     Route: 042
     Dates: start: 20201103, end: 20201107
  23. ONE ALPHA [Concomitant]
     Active Substance: ALFACALCIDOL
     Route: 048
  24. OCRELIZUMAB. [Suspect]
     Active Substance: OCRELIZUMAB
     Dosage: 300 MG/ 260 ML
     Route: 042
     Dates: start: 20200301, end: 20200301
  25. INFEX (EGYPT) [Concomitant]
     Indication: SYMPTOMATIC TREATMENT
     Route: 048
  26. ZINC. [Concomitant]
     Active Substance: ZINC
     Route: 048
     Dates: start: 20201113, end: 20201226

REACTIONS (1)
  - Suspected COVID-19 [Recovered/Resolved]

NARRATIVE: CASE EVENT DATE: 20201110
